FAERS Safety Report 5529156-4 (Version None)
Quarter: 2007Q4

REPORT INFORMATION
  Report Type: 
  Country: None (occurrence: None)
  Receive Date: 20071129
  Receipt Date: 20070302
  Transmission Date: 20080405
  Serious: No
  Sender: FDA-Public Use
  Company Number: A0641704A

PATIENT
  Sex: Female

DRUGS (1)
  1. WELLBUTRIN SR [Suspect]
     Indication: ANXIETY
     Dosage: 150MG UNKNOWN
     Route: 048
     Dates: start: 20060901

REACTIONS (6)
  - ANOREXIA [None]
  - FEELING OF RELAXATION [None]
  - HUNGER [None]
  - LAZINESS [None]
  - WEIGHT INCREASED [None]
  - WEIGHT LOSS POOR [None]
